FAERS Safety Report 6021045-4 (Version None)
Quarter: 2008Q4

REPORT INFORMATION
  Report Type: 
  Country: None (occurrence: None)
  Receive Date: 20081229
  Receipt Date: 20081218
  Transmission Date: 20090506
  Serious: Yes (Hospitalization)
  Sender: FDA-Public Use
  Company Number: US-BIOGENIDEC-2008BI034451

PATIENT
  Age: 33 Year
  Sex: Female

DRUGS (2)
  1. AVONEX [Suspect]
     Indication: MULTIPLE SCLEROSIS
     Route: 030
     Dates: end: 20081001
  2. AVONEX [Suspect]
     Route: 030

REACTIONS (3)
  - BENIGN INTRACRANIAL HYPERTENSION [None]
  - HEART RATE INCREASED [None]
  - INFLUENZA [None]
